FAERS Safety Report 12331959 (Version 2)
Quarter: 2016Q2

REPORT INFORMATION
  Report Type: Spontaneous
  Country: US (occurrence: US)
  Receive Date: 20160504
  Receipt Date: 20160609
  Transmission Date: 20160815
  Serious: No
  Sender: FDA-Public Use
  Company Number: US-PFIZER INC-2016202981

PATIENT
  Age: 57 Year
  Sex: Male
  Weight: 96.15 kg

DRUGS (8)
  1. EFFEXOR XR [Suspect]
     Active Substance: VENLAFAXINE HYDROCHLORIDE
     Dosage: 75 MG, DAILY
     Route: 048
     Dates: start: 20131217
  2. MORPHINE [Concomitant]
     Active Substance: MORPHINE
     Indication: PAIN
     Dosage: 30 MG, AS NEEDED (1 TABLET BY MOUTH EVERY AS NEEDED FOR PAIN)
     Route: 048
  3. EXCEDRIN MIGRAINE [Concomitant]
     Active Substance: ACETAMINOPHEN\ASPIRIN\CAFFEINE
     Dosage: [ACETYLSALICYLIC ACID 250MG/ CAFFEINE 65MG/ PARACETAMOL 250 MG], 2X/DAY
     Dates: start: 20150923
  4. IMITREX [Concomitant]
     Active Substance: SUMATRIPTAN SUCCINATE
     Dosage: 100 MG, 1X/DAY
     Route: 048
     Dates: start: 20131217
  5. LYRICA [Suspect]
     Active Substance: PREGABALIN
     Dosage: UNK
     Dates: end: 201602
  6. VITAMIN B12 [Concomitant]
     Active Substance: CYANOCOBALAMIN
  7. LYRICA [Suspect]
     Active Substance: PREGABALIN
     Dosage: 100 MG, 3X/DAY
     Route: 048
     Dates: start: 20131217
  8. TYLENOL PM [Concomitant]
     Active Substance: ACETAMINOPHEN\DIPHENHYDRAMINE
     Dosage: [DIPHENHYDRAMINE HCL  25 MG/ PARACETAMOL 50MG], 1X/DAY
     Route: 048
     Dates: start: 20131217

REACTIONS (10)
  - Burning sensation [Unknown]
  - Paraesthesia [Unknown]
  - Peripheral coldness [Unknown]
  - Pain [Unknown]
  - Carpal tunnel syndrome [Unknown]
  - Pain in extremity [Unknown]
  - Muscular weakness [Unknown]
  - Hypoaesthesia [Unknown]
  - Tremor [Unknown]
  - Hypertension [Unknown]
